FAERS Safety Report 7018735-3 (Version None)
Quarter: 2010Q3

REPORT INFORMATION
  Report Type: 
  Country: None (occurrence: None)
  Receive Date: 20100928
  Receipt Date: 20100921
  Transmission Date: 20110219
  Serious: Yes (Hospitalization)
  Sender: FDA-Public Use
  Company Number: IT-ELI_LILLY_AND_COMPANY-IT201009005475

PATIENT
  Sex: Female

DRUGS (6)
  1. HUMALOG [Suspect]
     Indication: DIABETES MELLITUS
     Dosage: 25 IU, DAILY (1/D)
     Route: 058
     Dates: start: 20090101, end: 20100612
  2. LASIX [Concomitant]
     Dosage: 25 MG, DAILY (1/D)
     Route: 048
  3. NEXIUM [Concomitant]
     Dosage: 40 MG, DAILY (1/D)
     Route: 048
  4. SERENASE                           /00027401/ [Concomitant]
     Dosage: 10 D/F, UNKNOWN
     Route: 048
  5. COUMADIN [Concomitant]
  6. TRAZODONE HCL [Concomitant]

REACTIONS (3)
  - BLOOD CREATINE PHOSPHOKINASE INCREASED [None]
  - HAEMOGLOBIN DECREASED [None]
  - HYPOGLYCAEMIC UNCONSCIOUSNESS [None]
